FAERS Safety Report 14004742 (Version 3)
Quarter: 2017Q4

REPORT INFORMATION
  Report Type: Report from Study
  Country: BE (occurrence: BE)
  Receive Date: 20170922
  Receipt Date: 20171011
  Transmission Date: 20180321
  Serious: Yes (Hospitalization)
  Sender: FDA-Public Use
  Company Number: BE-JNJFOC-20170609768

PATIENT
  Age: 75 Year
  Sex: Male

DRUGS (2)
  1. IBRUTINIB [Suspect]
     Active Substance: IBRUTINIB
     Indication: MANTLE CELL LYMPHOMA
     Route: 048
     Dates: start: 20160616, end: 20160914
  2. IBRUTINIB [Suspect]
     Active Substance: IBRUTINIB
     Indication: MANTLE CELL LYMPHOMA
     Route: 048
     Dates: start: 20161019, end: 20170107

REACTIONS (6)
  - White blood cell count decreased [Recovered/Resolved]
  - Lymphocytosis [Recovered/Resolved]
  - Agranulocytosis [Recovered/Resolved]
  - Neutrophil count decreased [Not Recovered/Not Resolved]
  - Anaemia [Recovered/Resolved]
  - White blood cell count increased [Recovered/Resolved]

NARRATIVE: CASE EVENT DATE: 20160914
